FAERS Safety Report 14263579 (Version 2)
Quarter: 2018Q1

REPORT INFORMATION
  Report Type: Spontaneous
  Country: JP (occurrence: JP)
  Receive Date: 20171208
  Receipt Date: 20180105
  Transmission Date: 20180508
  Serious: Yes (Death, Life-Threatening, Hospitalization, Disabling)
  Sender: FDA-Public Use
  Company Number: JP-DSJP-DSJ-2017-140697AA

PATIENT

DRUGS (1)
  1. LIXIANA TABLETS 30MG [Suspect]
     Active Substance: EDOXABAN TOSYLATE
     Indication: HIP ARTHROPLASTY
     Dosage: 15 MG, QD
     Route: 048
     Dates: start: 20170729, end: 20170908

REACTIONS (4)
  - Haemorrhage subcutaneous [Recovered/Resolved]
  - Pneumonia aspiration [Fatal]
  - Thalamus haemorrhage [Recovered/Resolved with Sequelae]
  - Cerebral ventricular rupture [Recovered/Resolved with Sequelae]

NARRATIVE: CASE EVENT DATE: 20170908
